FAERS Safety Report 19412800 (Version 2)
Quarter: 2021Q2

REPORT INFORMATION
  Report Type: Spontaneous
  Country: US (occurrence: US)
  Receive Date: 20210614
  Receipt Date: 20210614
  Transmission Date: 20210717
  Serious: No
  Sender: FDA-Public Use
  Company Number: US-GALDERMA-US2021011968

PATIENT
  Age: 56 Year
  Sex: Female

DRUGS (6)
  1. PROACTIV MD ADAPALENE ACNE TREATMENT [Suspect]
     Active Substance: ADAPALENE
     Indication: ACNE
     Dosage: 0.1%
     Route: 061
     Dates: start: 20210428
  2. PROACTIV MD ULTRA HYDRATING MOISTURIZER [Concomitant]
     Indication: ACNE
     Route: 061
     Dates: start: 20210428
  3. PROACTIV MD ULTRA GENTLE FOAMING CLEANSER [Concomitant]
     Indication: ACNE
     Route: 061
     Dates: start: 20210428
  4. PROACTIV POST ACNE SCAR GEL [Concomitant]
     Indication: ACNE
     Route: 061
     Dates: start: 20210428
  5. PROACTIV MD DAILY OIL CONTROL SPF 30 [Suspect]
     Active Substance: AVOBENZONE\OCTISALATE\OCTOCRYLENE
     Indication: ACNE
     Route: 061
     Dates: start: 20210428
  6. TYLENOL [Concomitant]
     Active Substance: ACETAMINOPHEN
     Indication: PRODUCT USED FOR UNKNOWN INDICATION
     Route: 065

REACTIONS (3)
  - Erythema [Not Recovered/Not Resolved]
  - Skin burning sensation [Not Recovered/Not Resolved]
  - Pruritus [Not Recovered/Not Resolved]

NARRATIVE: CASE EVENT DATE: 202104
